FAERS Safety Report 9762760 (Version 1)
Quarter: 2013Q4

REPORT INFORMATION
  Report Type: Spontaneous
  Country: US (occurrence: US)
  Receive Date: 20131216
  Receipt Date: 20131216
  Transmission Date: 20140711
  Serious: No
  Sender: FDA-Public Use
  Company Number: US-PFIZER INC-2013359520

PATIENT
  Age: 63 Year
  Sex: Male

DRUGS (3)
  1. ZOLOFT [Suspect]
     Dosage: UNK
     Dates: start: 2013
  2. VIAGRA [Suspect]
     Indication: LIBIDO DECREASED
     Dosage: UNK
     Dates: start: 2013
  3. VIAGRA [Suspect]
     Indication: ERECTILE DYSFUNCTION

REACTIONS (3)
  - Libido decreased [Unknown]
  - Erectile dysfunction [Unknown]
  - Drug ineffective [Unknown]
